FAERS Safety Report 9820937 (Version 2)
Quarter: 2014Q1

REPORT INFORMATION
  Report Type: Spontaneous
  Country: US (occurrence: US)
  Receive Date: 20140116
  Receipt Date: 20140225
  Transmission Date: 20141002
  Serious: No
  Sender: FDA-Public Use
  Company Number: US-TEVA-454251USA

PATIENT
  Age: 80 Year
  Sex: Male
  Weight: 97.61 kg

DRUGS (13)
  1. AZILECT [Suspect]
     Indication: PARKINSON^S DISEASE
  2. MIDODRINE [Suspect]
     Indication: PARKINSON^S DISEASE
     Dosage: 20 MILLIGRAM DAILY;
     Route: 048
  3. MIDODRINE [Suspect]
     Dosage: 10 MILLIGRAM DAILY;
     Route: 048
  4. SELEGILINE [Concomitant]
     Indication: PARKINSON^S DISEASE
     Dosage: 5 MILLIGRAM DAILY;
     Route: 048
  5. CARBIDOPA/LEVADOPA [Concomitant]
     Indication: PARKINSON^S DISEASE
     Dosage: 25/100 MG
     Route: 048
  6. SYNTHROID [Concomitant]
     Indication: HYPOTHYROIDISM
     Dosage: 150 MICROGRAM DAILY;
     Route: 048
  7. ZOCOR [Concomitant]
     Indication: BLOOD CHOLESTEROL INCREASED
     Dosage: 80 MILLIGRAM DAILY;
     Route: 048
  8. OMEPRAZOLE [Concomitant]
     Indication: GASTRIC DISORDER
     Dosage: 80 MILLIGRAM DAILY;
     Route: 048
  9. FLOMAX [Concomitant]
     Indication: BENIGN PROSTATIC HYPERPLASIA
     Dosage: .8 MILLIGRAM DAILY;
     Route: 048
  10. GABAPENTIN [Concomitant]
     Indication: PAIN
     Dosage: 100 MILLIGRAM DAILY;
     Route: 048
  11. TAMULOSIN [Concomitant]
     Dosage: .8 MILLIGRAM DAILY;
     Route: 048
  12. FIORINAL [Concomitant]
     Indication: BACK PAIN
  13. TIZANIDINE [Concomitant]
     Indication: SLEEP DISORDER
     Dosage: 4 MILLIGRAM DAILY;
     Route: 048

REACTIONS (4)
  - Orthostatic hypotension [Unknown]
  - Dizziness [Not Recovered/Not Resolved]
  - Tremor [Not Recovered/Not Resolved]
  - Fall [Recovered/Resolved]
